FAERS Safety Report 19699442 (Version 2)
Quarter: 2021Q3

REPORT INFORMATION
  Report Type: Spontaneous
  Country: NL (occurrence: NL)
  Receive Date: 20210813
  Receipt Date: 20210819
  Transmission Date: 20211014
  Serious: Yes (Life-Threatening, Other)
  Sender: FDA-Public Use
  Company Number: NL-TEVA-2021-NL-1940813

PATIENT
  Sex: Female

DRUGS (5)
  1. METFORMINE HYDROCHLORIDE / BRAND NAME NOT SPECIFIED [Concomitant]
     Dosage: THERAPY END DATE: ASKU
     Dates: start: 20191007
  2. COLECALCIFEROL / BRAND NAME NOT SPECIFIED [Concomitant]
     Active Substance: CHOLECALCIFEROL
     Dosage: THERAPY END DATE: ASKU
     Dates: start: 20190221
  3. ATORVASTATINE TABLET 10MG / BRAND NAME NOT SPECIFIED [Concomitant]
     Active Substance: ATORVASTATIN
     Dosage: THERAPY END DATE: ASKU
     Dates: start: 2013
  4. NEBIVOLOL TABLET 5MG / BRAND NAME NOT SPECIFIED [Suspect]
     Active Substance: NEBIVOLOL
     Indication: PRODUCT USED FOR UNKNOWN INDICATION
     Dosage: HALF A DAY, 1 DF, THERAPY END DATE: ASKU
     Route: 065
     Dates: start: 20150929
  5. CARBASALAATCALCIUM POEDER 100MG / BRAND NAME NOT SPECIFIED [Concomitant]
     Dosage: THERAPY END DATE: ASKU
     Dates: start: 2013

REACTIONS (9)
  - Dizziness [Recovered/Resolved]
  - Vomiting [Recovered/Resolved]
  - Choking [Recovered/Resolved]
  - Oesophageal disorder [Recovered/Resolved]
  - Near death experience [Recovered/Resolved]
  - Oesophageal food impaction [Recovered/Resolved]
  - Nightmare [Recovered/Resolved]
  - Depressed mood [Recovered/Resolved]
  - Dysphagia [Recovered/Resolved]

NARRATIVE: CASE EVENT DATE: 2015
